FAERS Safety Report 8001178-3 (Version None)
Quarter: 2011Q4

REPORT INFORMATION
  Report Type: 
  Country: None (occurrence: None)
  Receive Date: 20111219
  Receipt Date: 20111205
  Transmission Date: 20120403
  Serious: Yes (Life-Threatening, Hospitalization)
  Sender: FDA-Public Use
  Company Number: 2011MA017215

PATIENT
  Sex: Female
  Weight: 99.5192 kg

DRUGS (31)
  1. VITAMIN D [Concomitant]
  2. SOTALOL HCL [Concomitant]
  3. DARVOCET-N 100 [Concomitant]
  4. DYNACIRC CR [Concomitant]
  5. ACETAMINOPHEN [Concomitant]
  6. LIPITOR [Concomitant]
  7. LETROZOLE [Concomitant]
  8. SODIUM PHOSPHATE [Concomitant]
  9. TRAMADOL HCL [Concomitant]
  10. KEFLEX [Concomitant]
  11. HEPARIN [Concomitant]
  12. CRESTOR [Concomitant]
  13. DIGOXIN [Suspect]
     Indication: PRODUCT USED FOR UNKNOWN INDICATION
     Dosage: 0.25 MG;QD;PO
     Route: 048
     Dates: start: 20060828, end: 20080416
  14. ZOMETA [Concomitant]
  15. CENTRUM [Concomitant]
  16. ATIVAN [Concomitant]
  17. ULTRAM [Concomitant]
  18. PRILOSEC [Concomitant]
  19. SENOKOT [Concomitant]
  20. INSULIN [Concomitant]
  21. AMIODARONE [Concomitant]
  22. CALCIUM ACETATE [Concomitant]
  23. DILAUDID [Concomitant]
  24. FOLTRIN [Concomitant]
  25. CELEBREX [Concomitant]
  26. POTASSIUM CHLORIDE [Concomitant]
  27. FEMARA [Concomitant]
  28. VERAMYST [Concomitant]
  29. COUMADIN [Concomitant]
  30. ASPIRIN [Concomitant]
  31. ACTIVASE [Concomitant]

REACTIONS (44)
  - CEREBRAL INFARCTION [None]
  - URINARY RETENTION [None]
  - DYSARTHRIA [None]
  - AORTIC ARTERIOSCLEROSIS [None]
  - NASAL CONGESTION [None]
  - TACHYCARDIA [None]
  - ARRHYTHMIA [None]
  - URINARY TRACT INFECTION [None]
  - GAIT DISTURBANCE [None]
  - INSOMNIA [None]
  - OBESITY [None]
  - ATRIAL FIBRILLATION [None]
  - PULMONARY MASS [None]
  - MITRAL VALVE INCOMPETENCE [None]
  - UNRESPONSIVE TO STIMULI [None]
  - HYPERLIPIDAEMIA [None]
  - VIITH NERVE PARALYSIS [None]
  - RESPIRATORY FAILURE [None]
  - ATELECTASIS [None]
  - SINUS BRADYCARDIA [None]
  - ISCHAEMIC STROKE [None]
  - TRICUSPID VALVE INCOMPETENCE [None]
  - BREAST CANCER [None]
  - BRAIN OEDEMA [None]
  - SPEECH DISORDER [None]
  - ELECTROCARDIOGRAM ST-T SEGMENT ABNORMAL [None]
  - SLEEP DISORDER [None]
  - ESSENTIAL HYPERTENSION [None]
  - DEPRESSION [None]
  - PULMONARY CONGESTION [None]
  - CARDIAC FAILURE [None]
  - HAEMORRHAGIC STROKE [None]
  - ELECTROCARDIOGRAM ST-T CHANGE [None]
  - SUPRAVENTRICULAR TACHYCARDIA [None]
  - COUGH [None]
  - RHINITIS ALLERGIC [None]
  - OSTEOARTHRITIS [None]
  - OSTEOPENIA [None]
  - CONVULSION [None]
  - HOT FLUSH [None]
  - ARTHRALGIA [None]
  - CEREBRAL ARTERY OCCLUSION [None]
  - DYSPHAGIA [None]
  - ECCHYMOSIS [None]
